FAERS Safety Report 10934049 (Version 1)
Quarter: 2015Q1

REPORT INFORMATION
  Report Type: Spontaneous
  Country: NZ (occurrence: NZ)
  Receive Date: 20150320
  Receipt Date: 20150320
  Transmission Date: 20150721
  Serious: Yes (Other)
  Sender: FDA-Public Use
  Company Number: NZ-CIPLA LTD.-2015NZ01828

PATIENT

DRUGS (1)
  1. ALENDRONATE [Suspect]
     Active Substance: ALENDRONATE SODIUM

REACTIONS (4)
  - Renal failure [Recovered/Resolved]
  - Hypophosphatasia [Recovered/Resolved]
  - Fracture [Recovered/Resolved]
  - Osteomalacia [Unknown]
